FAERS Safety Report 19209649 (Version 2)
Quarter: 2021Q2

REPORT INFORMATION
  Report Type: Spontaneous
  Country: US (occurrence: US)
  Receive Date: 20210504
  Receipt Date: 20210517
  Transmission Date: 20210717
  Serious: Yes (Other)
  Sender: FDA-Public Use
  Company Number: US-GLENMARK PHARMACEUTICALS-2021GMK053736

PATIENT

DRUGS (1)
  1. ROPINIROLE TABLETS USP, 1 MG [Suspect]
     Active Substance: ROPINIROLE HYDROCHLORIDE
     Indication: RESTLESS LEGS SYNDROME
     Dosage: 1 MILLIGRAM, HS
     Route: 048
     Dates: start: 20210408, end: 20210423

REACTIONS (2)
  - Condition aggravated [Recovered/Resolved]
  - Coeliac disease [Recovered/Resolved]

NARRATIVE: CASE EVENT DATE: 20210423
